FAERS Safety Report 7007420-X (Version None)
Quarter: 2010Q3

REPORT INFORMATION
  Report Type: 
  Country: None (occurrence: None)
  Receive Date: 20100920
  Receipt Date: 20100908
  Transmission Date: 20110219
  Serious: Yes (Hospitalization)
  Sender: FDA-Public Use
  Company Number: WAES 1009USA01080

PATIENT
  Age: 78 Year
  Sex: Female

DRUGS (24)
  1. FOSAMAX [Suspect]
     Indication: OSTEOPOROSIS
     Dosage: 70 MG/WKY/PO
     Route: 048
     Dates: start: 20030101, end: 20090927
  2. BLINDED THERAPY UNK [Suspect]
     Dates: end: 20090811
  3. IBUPROFEN [Suspect]
     Indication: ARTHRITIS
     Dosage: 400 MG/PRN/PO
     Route: 048
     Dates: start: 20000101
  4. ASPIRIN [Suspect]
     Indication: ROUTINE HEALTH MAINTENANCE
     Dosage: 81 MG/DAILY/PO
     Route: 048
     Dates: start: 19680101, end: 20090901
  5. AGGRENOX [Concomitant]
  6. ATACAND [Concomitant]
  7. CEREFOLIN [Concomitant]
  8. EXELON [Concomitant]
  9. L-CARNITINE [Concomitant]
  10. LIFE FITNESS ARGININE TR PLUS [Concomitant]
  11. NAMENDA [Concomitant]
  12. LOVAZA [Concomitant]
  13. PURE ENCAPSULATIONS ULTRANUTRIEN [Concomitant]
  14. PURITY PRODUCTS PERFECT MULTI SU [Concomitant]
  15. VESICARE [Concomitant]
  16. VICODIN [Concomitant]
  17. LEVOTHYROXINE SODIUM [Concomitant]
  18. LISINOPRIL [Concomitant]
  19. LYCOPENE [Concomitant]
  20. MECLIZINE [Concomitant]
  21. OMEPRAZOLE [Concomitant]
  22. OXYBUTYNIN [Concomitant]
  23. UBIDECARENONE [Concomitant]
  24. VERAPAMIL [Concomitant]

REACTIONS (6)
  - GASTRIC ULCER [None]
  - GASTRITIS [None]
  - HAEMATOCRIT DECREASED [None]
  - HAEMOGLOBIN DECREASED [None]
  - SYNCOPE [None]
  - UPPER GASTROINTESTINAL HAEMORRHAGE [None]
